FAERS Safety Report 4576129-4 (Version None)
Quarter: 2005Q1

REPORT INFORMATION
  Report Type: 
  Country: None (occurrence: None)
  Receive Date: 20050201
  Receipt Date: 20050201
  Transmission Date: 20050727
  Serious: Yes (Other)
  Sender: FDA-Public Use
  Company Number: None

PATIENT
  Age: 25 Year
  Sex: Female
  Weight: 106.5953 kg

DRUGS (1)
  1. 4 WAYS NASAL SPRAY PHENYLEPHRIN HYDROCHORIDE [Suspect]
     Indication: RHINORRHOEA
     Dosage: 2 SPRAY TWO TIMES A DAY 4 TIMES A DAY ON THE 3
     Route: 045

REACTIONS (1)
  - DRUG DEPENDENCE [None]
